FAERS Safety Report 7013295-5 (Version None)
Quarter: 2010Q3

REPORT INFORMATION
  Report Type: 
  Country: None (occurrence: None)
  Receive Date: 20100924
  Receipt Date: 20100921
  Transmission Date: 20110219
  Serious: Yes (Death)
  Sender: FDA-Public Use
  Company Number: PHHY2010CA62111

PATIENT
  Sex: Female

DRUGS (3)
  1. ACLASTA/ZOLEDRONATE T29581+A+ [Suspect]
     Dosage: 5 MG
     Route: 042
     Dates: start: 20100303
  2. CALCIUM [Concomitant]
     Dosage: 500 MG, BID
     Dates: start: 20070101
  3. VITAMIN D [Concomitant]
     Dosage: 400 IU, BID

REACTIONS (1)
  - BREAST CANCER RECURRENT [None]
